FAERS Safety Report 9448897 (Version 2)
Quarter: 2013Q4

REPORT INFORMATION
  Report Type: Spontaneous
  Country: PT (occurrence: PT)
  Receive Date: 20130808
  Receipt Date: 20131127
  Transmission Date: 20140711
  Serious: Yes (Other)
  Sender: FDA-Public Use
  Company Number: PT-BRISTOL-MYERS SQUIBB COMPANY-19154871

PATIENT
  Age: 50 Year
  Sex: Male

DRUGS (3)
  1. ATAZANAVIR [Suspect]
     Indication: ACUTE HIV INFECTION
  2. TRUVADA [Suspect]
     Indication: ACUTE HIV INFECTION
  3. RITONAVIR [Suspect]
     Indication: ACUTE HIV INFECTION

REACTIONS (5)
  - Pneumonia [Unknown]
  - Cholecystitis chronic [Unknown]
  - Gallbladder cholesterolosis [Unknown]
  - Hyperbilirubinaemia [Unknown]
  - Nephrolithiasis [Unknown]
